FAERS Safety Report 24407984 (Version 1)
Quarter: 2024Q4

REPORT INFORMATION
  Report Type: Spontaneous
  Country: US (occurrence: US)
  Receive Date: 20241007
  Receipt Date: 20241007
  Transmission Date: 20250115
  Serious: Yes (Life-Threatening)
  Sender: RECKITT BENCKISER
  Company Number: US-INDIVIOR EUROPE LIMITED-INDV-143205-2024

PATIENT
  Sex: Female

DRUGS (2)
  1. SUBOXONE [Suspect]
     Active Substance: BUPRENORPHINE HYDROCHLORIDE\NALOXONE HYDROCHLORIDE
     Indication: Drug dependence
     Dosage: UNK
     Route: 065
     Dates: start: 2013, end: 2015
  2. SUBOXONE [Suspect]
     Active Substance: BUPRENORPHINE HYDROCHLORIDE\NALOXONE HYDROCHLORIDE
     Dosage: UNK
     Route: 065
     Dates: start: 2021

REACTIONS (15)
  - Post procedural infection [Not Recovered/Not Resolved]
  - Mastication disorder [Not Recovered/Not Resolved]
  - Gingival recession [Not Recovered/Not Resolved]
  - Impulse-control disorder [Unknown]
  - Bone loss [Not Recovered/Not Resolved]
  - Euphoric mood [Unknown]
  - Dental caries [Unknown]
  - Tooth fracture [Not Recovered/Not Resolved]
  - Tooth loss [Unknown]
  - Neck injury [Not Recovered/Not Resolved]
  - Nerve injury [Not Recovered/Not Resolved]
  - Dysphagia [Not Recovered/Not Resolved]
  - Drug dependence [Unknown]
  - Toothache [Not Recovered/Not Resolved]
  - Pain in jaw [Not Recovered/Not Resolved]
